FAERS Safety Report 9909612 (Version 1)
Quarter: 2014Q1

REPORT INFORMATION
  Report Type: Spontaneous
  Country: US (occurrence: US)
  Receive Date: 20140219
  Receipt Date: 20140219
  Transmission Date: 20141002
  Serious: No
  Sender: FDA-Public Use
  Company Number: US-BAYER-2014-024032

PATIENT
  Sex: Female

DRUGS (1)
  1. SAFYRAL [Suspect]
     Indication: MENSTRUATION IRREGULAR
     Dosage: UNK
     Route: 048

REACTIONS (2)
  - Off label use [None]
  - Drug dose omission [None]
